FAERS Safety Report 5831327-4 (Version None)
Quarter: 2008Q3

REPORT INFORMATION
  Report Type: 
  Country: None (occurrence: None)
  Receive Date: 20080801
  Receipt Date: 20080722
  Transmission Date: 20090109
  Serious: Yes (Other)
  Sender: FDA-Public Use
  Company Number: US-PFIZER INC-2008061136

PATIENT
  Age: 34 Year
  Sex: Male

DRUGS (7)
  1. XANAX [Suspect]
  2. ZOLOFT [Suspect]
     Dosage: DAILY DOSE:150MG
  3. TRAZODONE HCL [Suspect]
  4. AMBIEN [Suspect]
     Route: 048
  5. ALCOHOL [Suspect]
     Route: 048
  6. PHENERGAN ^AVENTIS PHARMA^ [Suspect]
  7. CYMBALTA [Suspect]
     Dosage: DAILY DOSE:60MG

REACTIONS (5)
  - AMNESIA [None]
  - DRUG ABUSE [None]
  - IMPRISONMENT [None]
  - SLEEP SEX [None]
  - SLEEP-RELATED EATING DISORDER [None]
